FAERS Safety Report 16240578 (Version 2)
Quarter: 2019Q2

REPORT INFORMATION
  Report Type: Report from Study
  Country: US (occurrence: US)
  Receive Date: 20190425
  Receipt Date: 20190604
  Transmission Date: 20190711
  Serious: Yes (Hospitalization)
  Sender: FDA-Public Use
  Company Number: US-EISAI MEDICAL RESEARCH-EC-2019-054657

PATIENT
  Sex: Male
  Weight: 69.5 kg

DRUGS (7)
  1. LENVIMA [Suspect]
     Active Substance: LENVATINIB
     Route: 048
     Dates: start: 2019
  2. HYDROCORTISONE-ACETIC ACID [Concomitant]
  3. LENVIMA [Suspect]
     Active Substance: LENVATINIB
     Indication: RENAL CANCER
     Route: 048
     Dates: start: 20190318, end: 201904
  4. VITAMIN D3 PLUS CALCIUM [Concomitant]
  5. LEVOTHYROXINE. [Concomitant]
     Active Substance: LEVOTHYROXINE
  6. AMLODIPINE [Concomitant]
     Active Substance: AMLODIPINE BESYLATE
  7. AFINITOR [Concomitant]
     Active Substance: EVEROLIMUS

REACTIONS (3)
  - Diarrhoea [Unknown]
  - Dehydration [Unknown]
  - Cholecystitis [Unknown]

NARRATIVE: CASE EVENT DATE: 2019
